FAERS Safety Report 15523281 (Version 1)
Quarter: 2018Q4

REPORT INFORMATION
  Report Type: Spontaneous
  Country: FI (occurrence: FI)
  Receive Date: 20181018
  Receipt Date: 20181018
  Transmission Date: 20190205
  Serious: Yes (Hospitalization)
  Sender: FDA-Public Use
  Company Number: FI-TAKEDA-2018TUS029945

PATIENT

DRUGS (17)
  1. CALCICHEW [Concomitant]
     Active Substance: CALCIUM CARBONATE
     Dosage: UNK UNK, QD
  2. EMGESAN [Concomitant]
     Active Substance: MAGNESIUM HYDROXIDE
     Dosage: 250 MG, BID
  3. FURESIS [Concomitant]
     Active Substance: FUROSEMIDE
     Dosage: 40 MG, QD
  4. ORLOC [Concomitant]
     Active Substance: BISOPROLOL FUMARATE
     Dosage: 50 MG, QD
  5. RAMIPRIL. [Concomitant]
     Active Substance: RAMIPRIL
     Dosage: 5 MG, QD
  6. XARELTO [Concomitant]
     Active Substance: RIVAROXABAN
     Dosage: 20 MG, QD
  7. PANACOD [Concomitant]
     Active Substance: ACETAMINOPHEN\CODEINE PHOSPHATE
     Dosage: UNK
  8. FELODIPIN [Concomitant]
     Active Substance: FELODIPINE
     Dosage: UNK
  9. PRAVASTATIN. [Concomitant]
     Active Substance: PRAVASTATIN
     Dosage: 40 MG, QD
  10. KALEORID [Concomitant]
     Active Substance: POTASSIUM CHLORIDE
     Dosage: 1 G, QD
  11. PREDNISOLON                        /00016201/ [Concomitant]
     Active Substance: PREDNISOLONE
     Dosage: 15 MG, UNK
  12. AZAMUN [Concomitant]
     Active Substance: AZATHIOPRINE
     Dosage: 75 MG, UNK
  13. EZETROL [Concomitant]
     Active Substance: EZETIMIBE
     Dosage: 5 MG, UNK
  14. ROBINEX [Concomitant]
     Dosage: UNK
  15. ENTYVIO [Suspect]
     Active Substance: VEDOLIZUMAB
     Indication: CROHN^S DISEASE
     Dosage: 300 MG, UNK
     Route: 065
     Dates: start: 20180706
  16. SANDIMUN [Concomitant]
     Active Substance: CYCLOSPORINE
     Dosage: UNK
  17. SOMAC [Concomitant]
     Active Substance: PANTOPRAZOLE SODIUM
     Dosage: 20 MG, QD

REACTIONS (2)
  - Oedema [Recovered/Resolved]
  - Weight increased [Unknown]
